FAERS Safety Report 11327909 (Version 1)
Quarter: 2015Q3

REPORT INFORMATION
  Report Type: Spontaneous
  Country: US (occurrence: US)
  Receive Date: 20150731
  Receipt Date: 20150731
  Transmission Date: 20151125
  Serious: No
  Sender: FDA-Public Use
  Company Number: US-TEVA-578994USA

PATIENT
  Sex: Male
  Weight: 84.9 kg

DRUGS (2)
  1. GILENYA [Concomitant]
     Active Substance: FINGOLIMOD HYDROCHLORIDE
  2. PROVIGIL [Suspect]
     Active Substance: MODAFINIL
     Indication: HYPERVIGILANCE

REACTIONS (1)
  - Product use issue [Unknown]
